FAERS Safety Report 19734340 (Version 1)
Quarter: 2021Q3

REPORT INFORMATION
  Report Type: Spontaneous
  Country: TR (occurrence: TR)
  Receive Date: 20210824
  Receipt Date: 20210824
  Transmission Date: 20211014
  Serious: No
  Sender: FDA-Public Use
  Company Number: TR-LUPIN PHARMACEUTICALS INC.-2021-15237

PATIENT
  Age: 24 Year
  Sex: Male

DRUGS (4)
  1. PAROXETINE. [Suspect]
     Active Substance: PAROXETINE
     Dosage: UNK (GRADUAL DOSE REDUCTION)
     Route: 065
  2. PAROXETINE. [Suspect]
     Active Substance: PAROXETINE
     Dosage: UNK (GRADUALLY DECREASED )
     Route: 065
  3. PAROXETINE. [Suspect]
     Active Substance: PAROXETINE
     Indication: SOCIAL ANXIETY DISORDER
     Dosage: 20 MILLIGRAM, QD
     Route: 065
  4. PAROXETINE. [Suspect]
     Active Substance: PAROXETINE
     Dosage: UNK
     Route: 065

REACTIONS (2)
  - Alopecia [Recovered/Resolved]
  - Emotional distress [Recovered/Resolved]
